FAERS Safety Report 14527058 (Version 1)
Quarter: 2018Q1

REPORT INFORMATION
  Report Type: Spontaneous
  Country: US (occurrence: US)
  Receive Date: 20180212
  Receipt Date: 20180212
  Transmission Date: 20180509
  Serious: No
  Sender: FDA-Public Use
  Company Number: None

PATIENT
  Sex: Female
  Weight: 9.9 kg

DRUGS (1)
  1. OSELTAMIVIR PHOSPHATE CAPSULES USP, 30 MG [Suspect]
     Active Substance: OSELTAMIVIR PHOSPHATE
     Indication: INFLUENZA
     Dosage: ?          QUANTITY:10 CAPSULE(S);?
     Route: 048
     Dates: start: 20180210, end: 20180211

REACTIONS (3)
  - Delirium [None]
  - Insomnia [None]
  - Abnormal behaviour [None]

NARRATIVE: CASE EVENT DATE: 20180211
